FAERS Safety Report 9705603 (Version 1)
Quarter: 2013Q4

REPORT INFORMATION
  Report Type: Spontaneous
  Country: US (occurrence: US)
  Receive Date: 20131122
  Receipt Date: 20131122
  Transmission Date: 20140711
  Serious: No
  Sender: FDA-Public Use
  Company Number: US-GILEAD-2008-0017169

PATIENT
  Age: 45 Year
  Sex: Female
  Weight: 79.38 kg

DRUGS (10)
  1. LETAIRIS [Suspect]
     Indication: PULMONARY ARTERIAL HYPERTENSION
     Route: 048
     Dates: start: 20080621, end: 20080705
  2. NEXIUM [Concomitant]
     Route: 048
  3. FLEXERIL [Concomitant]
     Route: 048
  4. DARVOCET-N [Concomitant]
  5. PHENERGAN [Concomitant]
     Route: 048
  6. PLAQUENIL [Concomitant]
     Route: 048
  7. EVOXAC [Concomitant]
     Route: 048
  8. MOTRIN [Concomitant]
     Route: 048
  9. CORGARD [Concomitant]
     Route: 048
  10. VITAMIN B12 [Concomitant]
     Route: 048

REACTIONS (12)
  - Hypersensitivity [Recovered/Resolved]
  - Muscular weakness [Recovered/Resolved]
  - Muscle spasms [Recovered/Resolved]
  - Myalgia [Recovered/Resolved]
  - Diarrhoea [Recovered/Resolved]
  - Pyrexia [Recovered/Resolved]
  - Night sweats [Recovered/Resolved]
  - Hyperhidrosis [Recovered/Resolved]
  - Chills [Recovered/Resolved]
  - Nausea [Recovered/Resolved]
  - Vomiting [Recovered/Resolved]
  - Palpitations [Recovered/Resolved]
